APPROVED DRUG PRODUCT: HYDROMORPHONE HYDROCHLORIDE
Active Ingredient: HYDROMORPHONE HYDROCHLORIDE
Strength: 0.5MG/0.5ML
Dosage Form/Route: INJECTABLE;INJECTION
Application: N200403 | Product #004
Applicant: HOSPIRA INC
Approved: Jun 13, 2022 | RLD: No | RS: No | Type: RX